FAERS Safety Report 10057035 (Version 1)
Quarter: 2014Q2

REPORT INFORMATION
  Report Type: Report from Study
  Country: JP (occurrence: JP)
  Receive Date: 20140403
  Receipt Date: 20140403
  Transmission Date: 20141212
  Serious: Yes (Life-Threatening)
  Sender: FDA-Public Use
  Company Number: JP-B.I. PHARMACEUTICALS,INC./RIDGEFIELD-2014-BI-13929NB

PATIENT
  Age: 76 Year
  Sex: Male
  Weight: 73.5 kg

DRUGS (14)
  1. PRAZAXA [Suspect]
     Indication: CEREBROVASCULAR ACCIDENT PROPHYLAXIS
     Dosage: 300 MG
     Route: 048
     Dates: start: 20131129, end: 20131202
  2. PRAZAXA [Suspect]
     Indication: CEREBROVASCULAR ACCIDENT PROPHYLAXIS
     Dosage: 150 MG
     Route: 048
     Dates: start: 20131202
  3. BAYASPIRIN [Concomitant]
     Indication: PROPHYLAXIS
     Dosage: 100 MG
     Route: 048
     Dates: start: 20131202
  4. PLAVIX [Concomitant]
     Indication: PROPHYLAXIS
     Dosage: 75 MG
     Route: 048
     Dates: start: 20131202
  5. ARTIST [Concomitant]
     Indication: ATRIAL FIBRILLATION
     Dosage: 2.5 MG
     Route: 048
  6. SELARA [Concomitant]
     Dosage: 25 MG
     Route: 048
  7. LANIRAPID [Concomitant]
     Dosage: 0.1 MG
     Route: 048
  8. RENIVACE [Concomitant]
     Dosage: 2.5 MG
     Route: 048
  9. LUPRAC [Concomitant]
     Dosage: 4 MG
     Route: 048
  10. GASMOTIN [Concomitant]
     Dosage: 15 MG
     Route: 048
  11. PROTECADIN [Concomitant]
     Dosage: 20 MG
     Route: 048
  12. FRANDOL [Concomitant]
     Dosage: 40 MG
     Route: 062
  13. GOUTMALON [Concomitant]
     Dosage: 50 MG
     Route: 048
  14. MOHRUS TAPE [Concomitant]
     Dosage: 40 MG
     Route: 062

REACTIONS (1)
  - Myocardial infarction [Recovered/Resolved]
